FAERS Safety Report 19665302 (Version 1)
Quarter: 2021Q3

REPORT INFORMATION
  Report Type: Spontaneous
  Country: CN (occurrence: CN)
  Receive Date: 20210806
  Receipt Date: 20210806
  Transmission Date: 20211014
  Serious: Yes (Hospitalization)
  Sender: FDA-Public Use
  Company Number: CN-009507513-2108CHN000156

PATIENT
  Age: 73 Year
  Sex: Male
  Weight: 71 kg

DRUGS (1)
  1. TIENAM [Suspect]
     Active Substance: CILASTATIN SODIUM\IMIPENEM
     Indication: INFECTION
     Dosage: DOSE: 0.5 G, FREQUENCY: 6 TIMES PER DAY
     Route: 041
     Dates: start: 20210714, end: 20210715

REACTIONS (2)
  - Drug eruption [Recovered/Resolved]
  - Inappropriate schedule of product administration [Unknown]

NARRATIVE: CASE EVENT DATE: 20210714
